FAERS Safety Report 6171594-3 (Version None)
Quarter: 2009Q2

REPORT INFORMATION
  Report Type: 
  Country: None (occurrence: None)
  Receive Date: 20090428
  Receipt Date: 20090428
  Transmission Date: 20091009
  Serious: Yes (Other)
  Sender: FDA-Public Use
  Company Number: None

PATIENT
  Age: 39 Year
  Sex: Female
  Weight: 56.6996 kg

DRUGS (1)
  1. CYMBALTA [Suspect]
     Indication: DEPRESSION
     Dosage: ONCE A DAY BUCCAL
     Route: 002
     Dates: start: 20080101, end: 20090415

REACTIONS (5)
  - CRYING [None]
  - DEPRESSED MOOD [None]
  - INFLUENZA [None]
  - PAIN [None]
  - SLEEP DISORDER [None]
